FAERS Safety Report 4437659-9 (Version None)
Quarter: 2004Q3

REPORT INFORMATION
  Report Type: 
  Country: None (occurrence: None)
  Receive Date: 20040827
  Receipt Date: 20040813
  Transmission Date: 20050211
  Serious: Yes (Life-Threatening, Hospitalization)
  Sender: FDA-Public Use
  Company Number: 04P-028-0261395-00

PATIENT
  Age: 79 Year
  Sex: Female
  Weight: 50 kg

DRUGS (12)
  1. HUMIRA [Suspect]
     Indication: RHEUMATOID ARTHRITIS
     Dosage: 1 IN 2 WK, SUBCUTANEOUS
     Route: 058
     Dates: start: 20040421, end: 20040514
  2. METHOTREXATE [Concomitant]
  3. KINERET [Concomitant]
  4. ROFECOXIB [Concomitant]
  5. PREDNISONE [Concomitant]
  6. RAMIPRIL [Concomitant]
  7. METOPROLOL TARTRATE [Concomitant]
  8. DIDRONEL PMO ^NORWICH EATON^ [Concomitant]
  9. FOLIC ACID [Concomitant]
  10. NATURAL TEARS [Concomitant]
  11. DIURETICS [Concomitant]
  12. ACETAMINOPHEN W/ CODEINE [Concomitant]

REACTIONS (9)
  - ASTHMA [None]
  - BLOOD UREA INCREASED [None]
  - CARDIAC FAILURE CONGESTIVE [None]
  - CARDIAC MURMUR [None]
  - CHEST X-RAY ABNORMAL [None]
  - INSOMNIA [None]
  - MITRAL VALVE INCOMPETENCE [None]
  - PEDAL PULSE DECREASED [None]
  - RHEUMATOID ARTHRITIS [None]
